FAERS Safety Report 9355525 (Version 1)
Quarter: 2013Q2

REPORT INFORMATION
  Report Type: Spontaneous
  Country: US (occurrence: None)
  Receive Date: 20130618
  Receipt Date: 20130618
  Transmission Date: 20140414
  Serious: Yes (Hospitalization)
  Sender: FDA-Public Use
  Company Number: None

PATIENT
  Age: 59 None
  Sex: Female

DRUGS (1)
  1. AFINITOR [Suspect]
     Route: 048
     Dates: start: 20130130

REACTIONS (1)
  - Swollen tongue [None]
